FAERS Safety Report 5378409-1 (Version None)
Quarter: 2007Q3

REPORT INFORMATION
  Report Type: 
  Country: None (occurrence: None)
  Receive Date: 20070702
  Receipt Date: 20070702
  Transmission Date: 20080115
  Serious: Yes (Hospitalization)
  Sender: FDA-Public Use
  Company Number: None

PATIENT
  Age: 53 Year
  Sex: Male
  Weight: 87.9978 kg

DRUGS (6)
  1. RIFAXIMIN, SALIX PHARMACEUTICALS [Suspect]
     Indication: HEPATIC ENCEPHALOPATHY
     Dosage: 200 MG TID, ORALLY
     Route: 048
     Dates: start: 20070503
  2. M.V.I. [Concomitant]
  3. VIT B12 [Concomitant]
  4. LASIX [Concomitant]
  5. FOLIC ACID [Concomitant]
  6. SPIROLACTONE [Concomitant]

REACTIONS (1)
  - DYSPNOEA [None]
